FAERS Safety Report 20503241 (Version 1)
Quarter: 2022Q1

REPORT INFORMATION
  Report Type: Spontaneous
  Country: US (occurrence: US)
  Receive Date: 20220222
  Receipt Date: 20220222
  Transmission Date: 20220423
  Serious: No
  Sender: FDA-Public Use
  Company Number: US-GW PHARMA-202202USGW00785

PATIENT
  Sex: Female
  Weight: 18.594 kg

DRUGS (1)
  1. EPIDIOLEX [Suspect]
     Active Substance: CANNABIDIOL
     Indication: Epilepsy
     Dosage: 16.13 MG/KG/DAY, 150 MILLIGRAM, BID
     Route: 048
     Dates: start: 20210316

REACTIONS (2)
  - Urinary tract infection [Unknown]
  - Product use in unapproved indication [Unknown]
